FAERS Safety Report 9129662 (Version 2)
Quarter: 2013Q1

REPORT INFORMATION
  Report Type: Spontaneous
  Country: US (occurrence: US)
  Receive Date: 20130228
  Receipt Date: 20130314
  Transmission Date: 20140127
  Serious: Yes (Hospitalization, Other)
  Sender: FDA-Public Use
  Company Number: US-PFIZER INC-2013067969

PATIENT
  Age: 7 Year
  Sex: Female
  Weight: 30.39 kg

DRUGS (2)
  1. BENEFIX [Suspect]
     Indication: FACTOR IX DEFICIENCY
     Dosage: 40 IU/KG, WEEKLY (2X/WEEK)
  2. BENEFIX [Suspect]
     Dosage: 1 IU, AS NEEDED

REACTIONS (3)
  - Haemorrhage [Unknown]
  - Disease complication [Unknown]
  - Off label use [Unknown]
